FAERS Safety Report 6168874-4 (Version None)
Quarter: 2009Q2

REPORT INFORMATION
  Report Type: 
  Country: None (occurrence: None)
  Receive Date: 20090427
  Receipt Date: 20090417
  Transmission Date: 20091009
  Serious: Yes (Death)
  Sender: FDA-Public Use
  Company Number: GB-PFIZER INC-2009199555

PATIENT

DRUGS (2)
  1. DALTEPARIN SODIUM [Suspect]
  2. DICLOFENAC SODIUM [Suspect]

REACTIONS (1)
  - GASTROINTESTINAL HAEMORRHAGE [None]
